FAERS Safety Report 9343199 (Version 1)
Quarter: 2013Q2

REPORT INFORMATION
  Report Type: Spontaneous
  Country: US (occurrence: US)
  Receive Date: 20130611
  Receipt Date: 20130611
  Transmission Date: 20140414
  Serious: No
  Sender: FDA-Public Use
  Company Number: US-ASTRAZENECA-2013SE40108

PATIENT
  Sex: Female

DRUGS (3)
  1. BRILINTA [Suspect]
     Indication: ACUTE CORONARY SYNDROME
     Route: 048
  2. BRILINTA [Suspect]
     Indication: ACUTE CORONARY SYNDROME
     Route: 048
     Dates: start: 2013
  3. UNSPECIFIED ACE INHIBITOR [Concomitant]
     Route: 065
     Dates: end: 2013

REACTIONS (2)
  - Cough [Unknown]
  - Off label use [Unknown]
